FAERS Safety Report 11085615 (Version 3)
Quarter: 2015Q2

REPORT INFORMATION
  Report Type: Spontaneous
  Country: US (occurrence: US)
  Receive Date: 20150503
  Receipt Date: 20150615
  Transmission Date: 20150821
  Serious: Yes (Hospitalization)
  Sender: FDA-Public Use
  Company Number: US-JNJFOC-20150401241

PATIENT
  Age: 57 Year
  Sex: Male
  Weight: 98.88 kg

DRUGS (8)
  1. GENERIC TRAMADOL HYDROCHLORIDE [Suspect]
     Active Substance: TRAMADOL HYDROCHLORIDE
     Indication: FIBROMYALGIA
     Route: 048
  2. TRAMADOL HYDROCHLORIDE. [Suspect]
     Active Substance: TRAMADOL HYDROCHLORIDE
     Indication: FIBROMYALGIA
     Route: 048
  3. ULTRAM [Suspect]
     Active Substance: TRAMADOL HYDROCHLORIDE
     Indication: FIBROMYALGIA
     Route: 048
     Dates: start: 200706
  4. ULTRAM [Suspect]
     Active Substance: TRAMADOL HYDROCHLORIDE
     Indication: FIBROMYALGIA
     Route: 048
  5. ULTRAM [Suspect]
     Active Substance: TRAMADOL HYDROCHLORIDE
     Indication: DETOXIFICATION
     Route: 048
     Dates: start: 200706
  6. ULTRAM [Suspect]
     Active Substance: TRAMADOL HYDROCHLORIDE
     Indication: DETOXIFICATION
     Route: 048
     Dates: start: 20150310, end: 20150315
  7. ULTRAM [Suspect]
     Active Substance: TRAMADOL HYDROCHLORIDE
     Indication: DETOXIFICATION
     Route: 048
  8. ULTRAM [Suspect]
     Active Substance: TRAMADOL HYDROCHLORIDE
     Indication: FIBROMYALGIA
     Route: 048
     Dates: start: 20150310, end: 20150315

REACTIONS (11)
  - Urinary tract disorder [Recovering/Resolving]
  - Drug dependence [Recovering/Resolving]
  - Prostatic disorder [Recovering/Resolving]
  - Insomnia [Unknown]
  - Nausea [Unknown]
  - Drug ineffective [Recovered/Resolved]
  - Corrective lens user [Unknown]
  - Withdrawal syndrome [Not Recovered/Not Resolved]
  - Sexual dysfunction [Unknown]
  - Psoriasis [Unknown]
  - Feeding disorder [Unknown]

NARRATIVE: CASE EVENT DATE: 200706
